FAERS Safety Report 18287381 (Version 1)
Quarter: 2020Q3

REPORT INFORMATION
  Report Type: Spontaneous
  Country: US (occurrence: US)
  Receive Date: 20200921
  Receipt Date: 20200921
  Transmission Date: 20201103
  Serious: Yes (Hospitalization)
  Sender: FDA-Public Use
  Company Number: US-APOTEX-2020AP017808

PATIENT
  Age: 54 Year
  Sex: Female
  Weight: 54.69 kg

DRUGS (10)
  1. DECADRON [Suspect]
     Active Substance: DEXAMETHASONE
     Indication: PLASMA CELL MYELOMA
     Dosage: 4 MILLIGRAM
     Route: 042
     Dates: start: 20171130, end: 20180125
  2. REVLIMID [Suspect]
     Active Substance: LENALIDOMIDE
     Dosage: 10 MILLIGRAM, QD FOR 21 DAYS OF EVERY 28 DAYS CYCLE
     Route: 048
     Dates: start: 20160419, end: 20160728
  3. DECADRON [Suspect]
     Active Substance: DEXAMETHASONE
     Dosage: 10 MILLIGRAM ON DAYS 1, 2, 15, 16, EVERY 28 DAYS CYCLE
     Route: 048
     Dates: start: 20170302, end: 20170608
  4. REVLIMID [Suspect]
     Active Substance: LENALIDOMIDE
     Indication: PLASMA CELL MYELOMA
     Dosage: 25 MILLIGRAM, QD FOR 14 DAYS, EVERY 21 DAY CYCLE
     Route: 048
     Dates: start: 20130218, end: 20130510
  5. REVLIMID [Suspect]
     Active Substance: LENALIDOMIDE
     Dosage: 25 MILLIGRAM, QD FOR 21 DAYS OF EVERY 28 DAY CYCLE
     Route: 048
     Dates: start: 20160811, end: 20170608
  6. REVLIMID [Suspect]
     Active Substance: LENALIDOMIDE
     Dosage: 10 MILLIGRAM, QD FOR 21 DAYS OF EVERY 28 DAYS CYCLE
     Route: 048
     Dates: start: 20140214, end: 20150724
  7. ALKERAN [Suspect]
     Active Substance: MELPHALAN
     Indication: PLASMA CELL MYELOMA
     Dosage: 200 MILLIGRAM/SQ. METER, SINGLE ONCE ON A DAY
     Route: 042
     Dates: start: 20130708, end: 20130708
  8. DECADRON [Suspect]
     Active Substance: DEXAMETHASONE
     Dosage: 20 MILLIGRAM, ON DAYS 1, 2, 8, 9, 15, 16, EVERY 28 DAYS CYCLE
     Route: 048
     Dates: start: 20160811, end: 20170201
  9. DECADRON [Suspect]
     Active Substance: DEXAMETHASONE
     Indication: PLASMA CELL MYELOMA
     Dosage: 20 MILLIGRAM, ON DAYS 1, 2, 4, 5, 8, 9, 11 12, EVERY 21 DAY CYCLE
     Route: 048
     Dates: start: 20130218, end: 20130510
  10. DECADRON [Suspect]
     Active Substance: DEXAMETHASONE
     Dosage: 10 MILLIGRAM ON DAY 1, 2, 8, 9, 15, 16, EVERY 28 DAY CYCLE
     Route: 048
     Dates: start: 20170202, end: 20170301

REACTIONS (1)
  - Anaemia [Recovered/Resolved]

NARRATIVE: CASE EVENT DATE: 20200505
